FAERS Safety Report 8620925-0 (Version None)
Quarter: 2012Q3

REPORT INFORMATION
  Report Type: 
  Country: None (occurrence: None)
  Receive Date: 20120824
  Receipt Date: 20120817
  Transmission Date: 20120928
  Serious: Yes (Hospitalization)
  Sender: FDA-Public Use
  Company Number: FR-PFIZER INC-2012201586

PATIENT
  Age: 25 Year
  Sex: Female

DRUGS (5)
  1. TRIPHASIL-21 [Suspect]
     Indication: CONTRACEPTION
     Dosage: 1 DF, 1X/DAY
     Route: 048
  2. KETOPROFEN [Suspect]
     Indication: TORTICOLLIS
     Dosage: 100 MG, 1X/DAY
     Route: 048
     Dates: start: 20120405, end: 20120406
  3. ACETAMINOPHEN [Suspect]
     Indication: TORTICOLLIS
     Dosage: UNK
     Route: 048
     Dates: start: 20120405, end: 20120406
  4. TETRAZEPAM [Suspect]
     Indication: TORTICOLLIS
     Dosage: UNK
     Route: 048
     Dates: start: 20120405, end: 20120406
  5. TRAMADOL HCL [Suspect]
     Indication: TORTICOLLIS
     Dosage: UNK
     Route: 048
     Dates: start: 20120405, end: 20120406

REACTIONS (2)
  - RECTAL HAEMORRHAGE [None]
  - COLITIS ISCHAEMIC [None]
